FAERS Safety Report 10606898 (Version 2)
Quarter: 2014Q4

REPORT INFORMATION
  Report Type: Spontaneous
  Country: FR (occurrence: FR)
  Receive Date: 20141125
  Receipt Date: 20141210
  Transmission Date: 20150529
  Serious: Yes (Death, Hospitalization, Other)
  Sender: FDA-Public Use
  Company Number: FR-TEVA-524493USA

PATIENT
  Age: 71 Year
  Sex: Male

DRUGS (11)
  1. MABTHERA [Suspect]
     Active Substance: RITUXIMAB
     Dosage: UNK UNK, CYCLIC (FIRST CURE)
     Route: 042
     Dates: start: 20120920
  2. ENDOXAN                            /00021101/ [Suspect]
     Active Substance: CYCLOPHOSPHAMIDE
     Indication: B-CELL LYMPHOMA
     Dosage: UNK UNK, UNKNOWN FREQ.
     Route: 042
     Dates: start: 2007, end: 2008
  3. LEVACT [Suspect]
     Active Substance: BENDAMUSTINE HYDROCHLORIDE
     Dosage: UNK UNK, CYCLIC
     Route: 042
     Dates: start: 20120928
  4. CHLORAMINOPHENE [Suspect]
     Active Substance: CHLORAMBUCIL
     Indication: B-CELL LYMPHOMA
     Dosage: UNK UNK, UNKNOWN FREQ.
     Route: 048
     Dates: start: 200204, end: 200404
  5. CHLORAMINOPHENE [Suspect]
     Active Substance: CHLORAMBUCIL
     Indication: B-CELL LYMPHOMA
     Dosage: UNK UNK, UNKNOWN FREQ.
     Route: 042
     Dates: start: 201105, end: 201109
  6. LEVACT [Suspect]
     Active Substance: BENDAMUSTINE HYDROCHLORIDE
     Dosage: UNK UNK, CYCLIC
     Route: 042
     Dates: start: 20120927
  7. LEVACT [Suspect]
     Active Substance: BENDAMUSTINE HYDROCHLORIDE
     Dosage: UNK UNK, CYCLIC (SECOND CURE)
     Route: 042
     Dates: start: 20121108
  8. MABTHERA [Suspect]
     Active Substance: RITUXIMAB
     Indication: B-CELL LYMPHOMA
     Dosage: UNK UNK, CYCLIC (RECEIVED 6 CURES)
     Route: 042
     Dates: start: 20110509, end: 201109
  9. MABTHERA [Suspect]
     Active Substance: RITUXIMAB
     Dosage: UNK UNK, CYCLIC (SECOND CURE)
     Route: 042
     Dates: start: 20121108
  10. LEVACT [Suspect]
     Active Substance: BENDAMUSTINE HYDROCHLORIDE
     Indication: B-CELL LYMPHOMA
     Dosage: UNK UNK, CYCLIC (FIRST CURE)
     Route: 042
     Dates: start: 20120920
  11. FLUDARABINE PHOSPHATE. [Suspect]
     Active Substance: FLUDARABINE PHOSPHATE
     Indication: B-CELL LYMPHOMA
     Dosage: UNK UNK, UNKNOWN FREQ.
     Route: 042
     Dates: start: 2007, end: 2008

REACTIONS (2)
  - Transitional cell carcinoma [Recovered/Resolved]
  - Lung neoplasm malignant [Fatal]

NARRATIVE: CASE EVENT DATE: 201307
